FAERS Safety Report 4897978-9 (Version None)
Quarter: 2006Q1

REPORT INFORMATION
  Report Type: 
  Country: None (occurrence: None)
  Receive Date: 20060201
  Receipt Date: 20060123
  Transmission Date: 20060701
  Serious: Yes (Other)
  Sender: FDA-Public Use
  Company Number: JP-JNJFOC-20060105891

PATIENT
  Age: 58 Year
  Sex: Female

DRUGS (11)
  1. REMICADE [Suspect]
     Route: 042
  2. REMICADE [Suspect]
     Dosage: 6 INFUSIONS ON UNSPECIFIED DATES
     Route: 042
  3. REMICADE [Suspect]
     Route: 042
  4. REMICADE [Suspect]
     Route: 042
  5. REMICADE [Suspect]
     Route: 042
  6. REMICADE [Suspect]
     Route: 042
  7. REMICADE [Suspect]
     Indication: RHEUMATOID ARTHRITIS
     Route: 042
  8. RHEUMATREX [Suspect]
     Route: 048
  9. RHEUMATREX [Suspect]
     Route: 048
  10. RHEUMATREX [Suspect]
     Indication: RHEUMATOID ARTHRITIS
     Route: 048
  11. ADRENAL HORMONE PREPARATIONS [Suspect]
     Indication: RHEUMATOID ARTHRITIS

REACTIONS (1)
  - RETINAL VEIN OCCLUSION [None]
